FAERS Safety Report 12065266 (Version 1)
Quarter: 2016Q1

REPORT INFORMATION
  Report Type: Spontaneous
  Country: US (occurrence: None)
  Receive Date: 20160210
  Receipt Date: 20160210
  Transmission Date: 20160526
  Serious: Yes (Death)
  Sender: FDA-Public Use
  Company Number: None

PATIENT
  Age: 62 Year
  Sex: Female
  Weight: 69 kg

DRUGS (2)
  1. SHOWER TO SHOWER TALCUM POWDER [Suspect]
     Active Substance: TALC
     Indication: THERAPEUTIC SKIN CARE TOPICAL
     Route: 061
     Dates: start: 1950, end: 20100413
  2. JOHNSONS BABY POWDER [Suspect]
     Active Substance: TALC
     Indication: THERAPEUTIC SKIN CARE TOPICAL
     Route: 061
     Dates: start: 1950, end: 20100413

REACTIONS (12)
  - Myocardial infarction [None]
  - Ovarian cancer stage IV [None]
  - Adhesion [None]
  - Necrosis [None]
  - Nephrolithiasis [None]
  - Metastases to peritoneum [None]
  - Metastases to spleen [None]
  - Carotid artery disease [None]
  - Intestinal perforation [None]
  - Pneumonia [None]
  - Metastases to liver [None]
  - Lymphadenopathy [None]

NARRATIVE: CASE EVENT DATE: 20020731
